FAERS Safety Report 13899328 (Version 3)
Quarter: 2018Q1

REPORT INFORMATION
  Report Type: Spontaneous
  Country: US (occurrence: US)
  Receive Date: 20170823
  Receipt Date: 20180124
  Transmission Date: 20180508
  Serious: Yes (Hospitalization)
  Sender: FDA-Public Use
  Company Number: US-JAZZ-2017-US-008119

PATIENT
  Sex: Female

DRUGS (51)
  1. TYLENOL [Suspect]
     Active Substance: ACETAMINOPHEN
     Indication: PRODUCT USED FOR UNKNOWN INDICATION
  2. METAXALONE. [Concomitant]
     Active Substance: METAXALONE
  3. CELEBREX [Concomitant]
     Active Substance: CELECOXIB
  4. DEXILANT [Concomitant]
     Active Substance: DEXLANSOPRAZOLE
  5. MODAFINIL. [Concomitant]
     Active Substance: MODAFINIL
  6. NORCO [Concomitant]
     Active Substance: ACETAMINOPHEN\HYDROCODONE BITARTRATE
  7. XYREM [Suspect]
     Active Substance: SODIUM OXYBATE
     Dosage: 4.5G, BID
     Route: 048
     Dates: start: 201507
  8. XOPENEX HFA [Concomitant]
     Active Substance: LEVALBUTEROL TARTRATE
  9. DILAUDID [Concomitant]
     Active Substance: HYDROMORPHONE HYDROCHLORIDE
  10. MAGNESIUM GLUCEPTATE [Concomitant]
     Active Substance: MAGNESIUM GLUCEPTATE
  11. DULERA [Concomitant]
     Active Substance: FORMOTEROL FUMARATE DIHYDRATE\MOMETASONE FUROATE
  12. HYDROCHLOROTHIAZIDE. [Concomitant]
     Active Substance: HYDROCHLOROTHIAZIDE
  13. NASONEX [Concomitant]
     Active Substance: MOMETASONE FUROATE
  14. NEXIUM [Concomitant]
     Active Substance: ESOMEPRAZOLE MAGNESIUM
  15. SPIRONOLACTONE. [Concomitant]
     Active Substance: SPIRONOLACTONE
  16. XYREM [Suspect]
     Active Substance: SODIUM OXYBATE
     Indication: CATAPLEXY
     Dosage: DOSE ADJUSTMENT
     Route: 048
     Dates: start: 201507, end: 201507
  17. NEUPRO [Concomitant]
     Active Substance: ROTIGOTINE
  18. BEPREVE [Concomitant]
     Active Substance: BEPOTASTINE BESILATE
  19. BUSPIRONE HCL [Concomitant]
     Active Substance: BUSPIRONE HYDROCHLORIDE
  20. LEVOCETIRIZINE [Concomitant]
     Active Substance: LEVOCETIRIZINE
  21. METFORMIN HCL [Concomitant]
     Active Substance: METFORMIN HYDROCHLORIDE
  22. FENTANYL. [Concomitant]
     Active Substance: FENTANYL
  23. VIIBRYD [Concomitant]
     Active Substance: VILAZODONE HYDROCHLORIDE
  24. HORIZANT [Concomitant]
     Active Substance: GABAPENTIN ENACARBIL
  25. OMEGA 3 FISH OIL                   /01334101/ [Concomitant]
     Active Substance: FISH OIL
  26. CLONAZEPAM. [Concomitant]
     Active Substance: CLONAZEPAM
  27. PROVIGIL [Concomitant]
     Active Substance: MODAFINIL
  28. BOTOX [Concomitant]
     Active Substance: ONABOTULINUMTOXINA
  29. VITAMIN D                          /00107901/ [Concomitant]
     Active Substance: ERGOCALCIFEROL
  30. XYREM [Suspect]
     Active Substance: SODIUM OXYBATE
     Indication: NARCOLEPSY
     Dosage: 2.25G, BID
     Route: 048
     Dates: start: 201506, end: 201507
  31. DOXYCYCLINE HYCLATE. [Concomitant]
     Active Substance: DOXYCYCLINE HYCLATE
  32. RITALIN [Concomitant]
     Active Substance: METHYLPHENIDATE HYDROCHLORIDE
  33. VAGIFEM [Concomitant]
     Active Substance: ESTRADIOL
  34. KETOTIFEN FUMARATE. [Concomitant]
     Active Substance: KETOTIFEN FUMARATE
  35. DEXAMETHASONE. [Concomitant]
     Active Substance: DEXAMETHASONE
  36. CRESTOR [Concomitant]
     Active Substance: ROSUVASTATIN CALCIUM
  37. CYCLOBENZAPRINE. [Concomitant]
     Active Substance: CYCLOBENZAPRINE
  38. DONNATAL [Concomitant]
     Active Substance: ATROPINE SULFATE\HYOSCYAMINE SULFATE\PHENOBARBITAL\SCOPOLAMINE HYDROBROMIDE
  39. VENTOLIN HFA [Concomitant]
     Active Substance: ALBUTEROL SULFATE
  40. VIVELLE-DOT [Concomitant]
     Active Substance: ESTRADIOL
  41. SINGULAIR [Concomitant]
     Active Substance: MONTELUKAST SODIUM
  42. ADDERALL [Concomitant]
     Active Substance: AMPHETAMINE ASPARTATE\AMPHETAMINE SULFATE\DEXTROAMPHETAMINE SACCHARATE\DEXTROAMPHETAMINE SULFATE
  43. GABAPENTIN. [Concomitant]
     Active Substance: GABAPENTIN
  44. PREDNISONE. [Concomitant]
     Active Substance: PREDNISONE
  45. METHOCARBAMOL. [Concomitant]
     Active Substance: METHOCARBAMOL
  46. FERROUS SULFATE. [Concomitant]
     Active Substance: FERROUS SULFATE
  47. XOLAIR [Concomitant]
     Active Substance: OMALIZUMAB
  48. COENZYME Q10 [Concomitant]
     Active Substance: UBIDECARENONE
  49. FIORICET [Concomitant]
     Active Substance: ACETAMINOPHEN\BUTALBITAL\CAFFEINE
  50. FLUCONAZOLE. [Concomitant]
     Active Substance: FLUCONAZOLE
  51. HYDROXYZINE HCL [Concomitant]
     Active Substance: HYDROXYZINE HYDROCHLORIDE

REACTIONS (4)
  - Anxiety [Recovering/Resolving]
  - Medication overuse headache [Unknown]
  - Depression [Recovering/Resolving]
  - Migraine [Recovering/Resolving]
